FAERS Safety Report 12816612 (Version 1)
Quarter: 2016Q4

REPORT INFORMATION
  Report Type: Report from Study
  Country: JP (occurrence: JP)
  Receive Date: 20161005
  Receipt Date: 20161005
  Transmission Date: 20170207
  Serious: Yes (Hospitalization)
  Sender: FDA-Public Use
  Company Number: JP-DSJP-DSJ-2016-133098

PATIENT

DRUGS (8)
  1. NICARDIPINE [Concomitant]
     Active Substance: NICARDIPINE
     Dosage: 50MG/DAY
     Route: 042
     Dates: start: 20160127, end: 20160212
  2. EDOXABAN [Suspect]
     Active Substance: EDOXABAN TOSYLATE
     Indication: ATRIAL FIBRILLATION
     Dosage: 30 MG, QD
     Route: 048
     Dates: start: 20160127, end: 20160317
  3. FUROSEMIDE. [Concomitant]
     Active Substance: FUROSEMIDE
     Dosage: 20MG/DAY
     Route: 048
     Dates: start: 20160126, end: 20160323
  4. HANP FOR INJECTION 1000 [Concomitant]
     Dosage: 1000UG/DAY
     Route: 042
     Dates: start: 20160125, end: 20160127
  5. FUROSEMIDE. [Concomitant]
     Active Substance: FUROSEMIDE
     Dosage: 20MG/DAY
     Route: 042
     Dates: start: 20160125, end: 20160127
  6. ENALAPRIL                          /00574902/ [Concomitant]
     Active Substance: ENALAPRIL
     Dosage: 5MG/DAY
     Route: 048
     Dates: start: 20160126
  7. CEFTRIAXONE. [Concomitant]
     Active Substance: CEFTRIAXONE
     Dosage: 2G/DAY
     Route: 042
     Dates: start: 20160125, end: 20160128
  8. AMLODIPINE                         /00972402/ [Concomitant]
     Active Substance: AMLODIPINE BESYLATE
     Dosage: 5MG/DAY
     Route: 048
     Dates: start: 20160126

REACTIONS (2)
  - Duodenal ulcer haemorrhage [Recovered/Resolved]
  - Lacunar infarction [Recovered/Resolved with Sequelae]

NARRATIVE: CASE EVENT DATE: 20160206
